FAERS Safety Report 7137283-3 (Version None)
Quarter: 2010Q4

REPORT INFORMATION
  Report Type: 
  Country: None (occurrence: None)
  Receive Date: 20101206
  Receipt Date: 20101123
  Transmission Date: 20110411
  Serious: Yes (Other)
  Sender: FDA-Public Use
  Company Number: PHHY2010CA72627

PATIENT
  Age: 51 Year
  Sex: Female

DRUGS (5)
  1. GLEEVEC [Suspect]
     Indication: CHRONIC MYELOID LEUKAEMIA
     Dosage: 400 MG, UNK
     Route: 048
     Dates: start: 20050101
  2. VENTOLIN [Concomitant]
  3. RABEPRAZOLE SODIUM [Concomitant]
  4. HYDROCHLOROTHIAZIDE [Concomitant]
  5. PULMICORT [Concomitant]

REACTIONS (2)
  - BLOOD CREATINE PHOSPHOKINASE INCREASED [None]
  - TONGUE SPASM [None]
